FAERS Safety Report 8605674-7 (Version None)
Quarter: 2012Q3

REPORT INFORMATION
  Report Type: 
  Country: None (occurrence: None)
  Receive Date: 20120820
  Receipt Date: 20120621
  Transmission Date: 20120928
  Serious: Yes (Hospitalization, Other)
  Sender: FDA-Public Use
  Company Number: IN-ROCHE-1069520

PATIENT
  Sex: Male

DRUGS (7)
  1. NIFEDIPINE [Concomitant]
     Dates: start: 20070330
  2. PREDNISONE [Suspect]
     Indication: RENAL TRANSPLANT
     Dates: start: 20110609
  3. MIXTARD HUMAN 70/30 [Concomitant]
     Dates: start: 20120319
  4. CELLCEPT [Suspect]
     Indication: RENAL TRANSPLANT
     Dates: start: 20070228
  5. BELATACEPT [Suspect]
     Indication: RENAL TRANSPLANT
     Route: 042
     Dates: start: 20070228
  6. ATENOLOL [Concomitant]
     Dates: start: 20070302
  7. METFORMIN HYDROCHLORIDE [Concomitant]
     Dates: start: 20110712

REACTIONS (1)
  - PERIODONTITIS [None]
